FAERS Safety Report 7301325-2 (Version None)
Quarter: 2011Q1

REPORT INFORMATION
  Report Type: 
  Country: None (occurrence: None)
  Receive Date: 20110113
  Receipt Date: 20101021
  Transmission Date: 20110831
  Serious: Yes (Other)
  Sender: FDA-Public Use
  Company Number: US-001361

PATIENT
  Sex: Male
  Weight: 28.2 kg

DRUGS (3)
  1. KUVAN [Suspect]
     Indication: PHENYLKETONURIA
     Dosage: (20 MG/KG QD ORAL), (1500 MG QD ORAL), (500 MG QD ORAL)
     Route: 048
     Dates: start: 20100805, end: 20101020
  2. KUVAN [Suspect]
     Indication: PHENYLKETONURIA
     Dosage: (20 MG/KG QD ORAL), (1500 MG QD ORAL), (500 MG QD ORAL)
     Route: 048
     Dates: start: 20101020, end: 20101027
  3. KUVAN [Suspect]
     Indication: PHENYLKETONURIA
     Dosage: (20 MG/KG QD ORAL), (1500 MG QD ORAL), (500 MG QD ORAL)
     Route: 048
     Dates: start: 20101027

REACTIONS (1)
  - AMINO ACID LEVEL INCREASED [None]
